FAERS Safety Report 9516828 (Version 1)
Quarter: 2013Q1

REPORT INFORMATION
  Report Type: Spontaneous
  Country: US (occurrence: None)
  Receive Date: 20130305
  Receipt Date: 20130305
  Transmission Date: 20140127
  Serious: Yes (Life-Threatening, Other)
  Sender: FDA-Public Use
  Company Number: 163-21880-12011229

PATIENT
  Age: 82 Year
  Sex: Male
  Weight: 75.3 kg

DRUGS (9)
  1. REVLIMID (LENALIDOMIDE) (15 MILLIGRAM, CAPSULES) [Suspect]
     Indication: PLASMA CELL MYELOMA
     Dosage: HOLD
  2. COUMADIN (WARFARIN SODIUIM) [Concomitant]
  3. METOPROLOL (METOPROLOL) [Concomitant]
  4. LOSARTAN (LOSARTAN) [Concomitant]
  5. ALLOPURINOL [Concomitant]
  6. SIMVASTATIN (SIMVASTATIN) [Concomitant]
  7. OXYCODONE/APAP  (OXYCODONE/APAP) [Concomitant]
  8. PRED FORTE (PREDNISOLONE ACETATE) [Concomitant]
  9. BREMBAY (ALL OTHER THERAPEUTIC PRODUCT) [Concomitant]

REACTIONS (3)
  - Deep vein thrombosis [None]
  - Cataract [None]
  - Local swelling [None]
